FAERS Safety Report 10252387 (Version 1)
Quarter: 2014Q2

REPORT INFORMATION
  Report Type: Spontaneous
  Country: GB (occurrence: GB)
  Receive Date: 20140623
  Receipt Date: 20140623
  Transmission Date: 20141212
  Serious: Yes (Life-Threatening)
  Sender: FDA-Public Use
  Company Number: GB-TEVA-488153ISR

PATIENT
  Age: 59 Year
  Sex: Male
  Weight: 76.2 kg

DRUGS (3)
  1. BACLOFEN [Suspect]
     Indication: ALCOHOLISM
     Dosage: 40 MILLIGRAM DAILY;
     Dates: start: 20130720, end: 20130810
  2. SOLPADOL [Concomitant]
     Indication: JOINT INJURY
  3. VITAMINS NOS [Concomitant]
     Dosage: HIGH DOSE.

REACTIONS (12)
  - Psychotic disorder [Recovering/Resolving]
  - Amnesia [Recovering/Resolving]
  - Hallucinations, mixed [Recovering/Resolving]
  - Nightmare [Recovering/Resolving]
  - Confusional state [Recovering/Resolving]
  - Euphoric mood [Recovering/Resolving]
  - Insomnia [Recovering/Resolving]
  - Convulsion [Recovering/Resolving]
  - Vomiting [Recovering/Resolving]
  - Balance disorder [Recovering/Resolving]
  - Drug withdrawal syndrome [Unknown]
  - Physical assault [Unknown]
